FAERS Safety Report 11474926 (Version 1)
Quarter: 2015Q3

REPORT INFORMATION
  Report Type: Spontaneous
  Country: US (occurrence: US)
  Receive Date: 20150908
  Receipt Date: 20150908
  Transmission Date: 20151125
  Serious: Yes (Other)
  Sender: FDA-Public Use
  Company Number: US-ABBVIE-15P-163-1455962-00

PATIENT
  Age: 40 Year
  Sex: Female

DRUGS (2)
  1. METANX [Concomitant]
     Active Substance: LEVOMEFOLATE CALCIUM\METHYLCOBALAMIN\PYRIDOXAL PHOSPHATE ANHYDROUS
     Indication: BLOOD FOLATE
  2. SYNTHROID [Suspect]
     Active Substance: LEVOTHYROXINE SODIUM
     Indication: THYROID DISORDER
     Route: 065
     Dates: start: 201311

REACTIONS (5)
  - Uterine adhesions [Unknown]
  - Autoimmune thyroiditis [Unknown]
  - Fallopian tube obstruction [Not Recovered/Not Resolved]
  - Uterine polyp [Not Recovered/Not Resolved]
  - Ovarian mass [Not Recovered/Not Resolved]

NARRATIVE: CASE EVENT DATE: 2015
